FAERS Safety Report 13644363 (Version 1)
Quarter: 2017Q2

REPORT INFORMATION
  Report Type: Spontaneous
  Country: US (occurrence: US)
  Receive Date: 20170612
  Receipt Date: 20170612
  Transmission Date: 20170830
  Serious: No
  Sender: FDA-Public Use
  Company Number: US-ROCHE-1287936

PATIENT
  Sex: Female

DRUGS (10)
  1. XELODA [Suspect]
     Active Substance: CAPECITABINE
     Route: 048
  2. ZEMPLAR [Concomitant]
     Active Substance: PARICALCITOL
  3. SYNVISC [Concomitant]
     Active Substance: HYALURONATE SODIUM
  4. OMEPRAZOLE. [Concomitant]
     Active Substance: OMEPRAZOLE
  5. FUROSEMIDE. [Concomitant]
     Active Substance: FUROSEMIDE
  6. CODEINE [Concomitant]
     Active Substance: CODEINE
  7. XELODA [Suspect]
     Active Substance: CAPECITABINE
     Dosage: AM,PM
     Route: 048
     Dates: start: 20130801
  8. TYLENOL [Concomitant]
     Active Substance: ACETAMINOPHEN
  9. XELODA [Suspect]
     Active Substance: CAPECITABINE
     Dosage: 14 DAYS ON AND 14 DAYS OFF
     Route: 048
     Dates: start: 20140317
  10. XELODA [Suspect]
     Active Substance: CAPECITABINE
     Indication: PRODUCT USED FOR UNKNOWN INDICATION
     Dosage: MOST RECENT DOSE WAS 3 TABLETS BY MOUTH TWICE DAILY FOR 14 DAYS
     Route: 048

REACTIONS (4)
  - Pain in extremity [Unknown]
  - Rash [Unknown]
  - Skin wrinkling [Not Recovered/Not Resolved]
  - Diarrhoea [Unknown]
